FAERS Safety Report 8845684 (Version 1)
Quarter: 2012Q4

REPORT INFORMATION
  Report Type: 
  Country: GR (occurrence: GR)
  Receive Date: 20121017
  Receipt Date: 20121017
  Transmission Date: 20130627
  Serious: Yes (Other)
  Sender: FDA-Public Use
  Company Number: GR-ABBOTT-12P-066-0994800-00

PATIENT
  Age: 65 Year
  Sex: Male

DRUGS (1)
  1. DEPAKINE CHRONO [Suspect]
     Indication: BIPOLAR DISORDER
     Route: 065
     Dates: start: 2010

REACTIONS (4)
  - Weight increased [Unknown]
  - Walking disability [Unknown]
  - Abdominal pain [Unknown]
  - Enuresis [Unknown]
